FAERS Safety Report 15403070 (Version 1)
Quarter: 2018Q3

REPORT INFORMATION
  Report Type: Spontaneous
  Country: US (occurrence: US)
  Receive Date: 20180918
  Receipt Date: 20180918
  Transmission Date: 20181010
  Serious: Yes (Other)
  Sender: FDA-Public Use
  Company Number: None

PATIENT
  Age: 47 Year
  Sex: Male
  Weight: 83.25 kg

DRUGS (1)
  1. LITHIUM CARBONATE 300MG [Suspect]
     Active Substance: LITHIUM CARBONATE
     Indication: CLUSTER HEADACHE
     Dosage: ?          QUANTITY:2 CAPSULE(S);?
     Route: 048

REACTIONS (4)
  - Product quality issue [None]
  - Antipsychotic drug level below therapeutic [None]
  - Headache [None]
  - Drug ineffective [None]

NARRATIVE: CASE EVENT DATE: 20180501
